FAERS Safety Report 8623774-2 (Version None)
Quarter: 2012Q3

REPORT INFORMATION
  Report Type: 
  Country: None (occurrence: None)
  Receive Date: 20120827
  Receipt Date: 20120816
  Transmission Date: 20120928
  Serious: Yes (Other)
  Sender: FDA-Public Use
  Company Number: US-ASTRAZENECA-2012SE57957

PATIENT
  Age: 32 Year
  Sex: Female

DRUGS (27)
  1. LISINOPRIL [Suspect]
     Route: 048
  2. FIROCET [Concomitant]
  3. PRILOCAINE HYDROCHLORIDE [Concomitant]
     Dosage: 2.5%
  4. LYRICA [Concomitant]
  5. VISTARIL [Concomitant]
     Indication: ANXIETY
  6. COMPAZINE [Concomitant]
  7. METFORMIN HCL [Concomitant]
  8. PROTONIX [Concomitant]
  9. OXYCODONE [Concomitant]
     Indication: PAIN
  10. ANALPRAM [Concomitant]
  11. LIPITOR [Concomitant]
  12. CALAN [Concomitant]
  13. ALBUTEROL [Concomitant]
     Indication: WHEEZING
  14. ZOMIG [Suspect]
     Route: 048
  15. NOVOLOG [Concomitant]
     Dosage: 70/30 15 UG, A5 MINUTES BEFORE BREAKFAST
  16. ASPIRIN [Concomitant]
  17. LYRICA [Concomitant]
  18. LACTULOSE [Concomitant]
  19. AMBIEN [Concomitant]
     Indication: SLEEP DISORDER
  20. ELAVIL [Suspect]
     Route: 065
  21. HYDROCHLOROTHIAZIDE [Concomitant]
  22. VITAMIN D [Concomitant]
  23. REMERON [Concomitant]
  24. ZANAFLEX [Concomitant]
  25. MAGNESIUM [Concomitant]
  26. LIDOCAINE [Concomitant]
  27. NAFTIN [Concomitant]

REACTIONS (18)
  - BACK PAIN [None]
  - WEIGHT INCREASED [None]
  - VOMITING [None]
  - HYPERTENSION [None]
  - TYPE 2 DIABETES MELLITUS [None]
  - FIBROMYALGIA [None]
  - TEMPOROMANDIBULAR JOINT SYNDROME [None]
  - DYSSTASIA [None]
  - NAUSEA [None]
  - ASTHMA [None]
  - OESOPHAGEAL SPASM [None]
  - GAIT DISTURBANCE [None]
  - SLEEP APNOEA SYNDROME [None]
  - MIGRAINE [None]
  - ATAXIA [None]
  - SUPRAVENTRICULAR TACHYCARDIA [None]
  - PULMONARY HYPERTENSION [None]
  - ANAEMIA [None]
